FAERS Safety Report 21727760 (Version 1)
Quarter: 2022Q4

REPORT INFORMATION
  Report Type: Spontaneous
  Country: JP (occurrence: JP)
  Receive Date: 20221214
  Receipt Date: 20221214
  Transmission Date: 20230113
  Serious: No
  Sender: FDA-Public Use
  Company Number: JP-PFIZER INC-202201359630

PATIENT

DRUGS (1)
  1. PAXLOVID [Suspect]
     Active Substance: NIRMATRELVIR\RITONAVIR
     Indication: COVID-19 treatment
     Dosage: TOOK 2 TABLETS OF NIRMATRELVIR, 2 TABLETS OF RITONAVIR ALTERNATELY FOR 2 DAYS
     Route: 048

REACTIONS (1)
  - Incorrect dose administered [Unknown]
